FAERS Safety Report 23627660 (Version 1)
Quarter: 2024Q1

REPORT INFORMATION
  Report Type: Spontaneous
  Country: US (occurrence: None)
  Receive Date: 20240313
  Receipt Date: 20240313
  Transmission Date: 20240409
  Serious: Yes (Hospitalization, Other)
  Sender: FDA-Public Use
  Company Number: None

PATIENT
  Age: 27 Year
  Sex: Female

DRUGS (2)
  1. ASPIRIN [Suspect]
     Active Substance: ASPIRIN
     Indication: Pregnancy
     Dosage: FREQUENCY : DAILY;?
     Route: 048
     Dates: start: 20231220
  2. VITAMINS [Suspect]
     Active Substance: VITAMINS
     Indication: Pregnancy
     Dosage: FREQUENCY : DAILY;?
     Route: 048

REACTIONS (2)
  - Gestational hypertension [None]
  - Exposure during pregnancy [None]

NARRATIVE: CASE EVENT DATE: 20240216
